FAERS Safety Report 5607543-3 (Version None)
Quarter: 2008Q1

REPORT INFORMATION
  Report Type: 
  Country: None (occurrence: None)
  Receive Date: 20080130
  Receipt Date: 20080121
  Transmission Date: 20080703
  Serious: Yes (Hospitalization, Other)
  Sender: FDA-Public Use
  Company Number: CA-BAYER-200716400GDS

PATIENT
  Sex: Male
  Weight: 78 kg

DRUGS (3)
  1. CIPRO [Suspect]
     Indication: CHLAMYDIAL INFECTION
     Dates: start: 20070409
  2. ERYTHROMYCIN [Suspect]
     Indication: DRUG USE FOR UNKNOWN INDICATION
  3. STROMECTOL [Suspect]
     Indication: STRONGYLOIDIASIS
     Route: 048
     Dates: start: 20070604

REACTIONS (1)
  - DIABETIC KETOACIDOSIS [None]
